FAERS Safety Report 6022677-X (Version None)
Quarter: 2008Q4

REPORT INFORMATION
  Report Type: 
  Country: None (occurrence: None)
  Receive Date: 20081223
  Receipt Date: 20081215
  Transmission Date: 20090506
  Serious: Yes (Life-Threatening, Hospitalization, Disabling)
  Sender: FDA-Public Use
  Company Number: 08P-087-0477684-00

PATIENT
  Age: 15 Day
  Sex: Male

DRUGS (4)
  1. SYNAGIS [Suspect]
     Indication: ANTIVIRAL PROPHYLAXIS
     Dosage: 36 MG DAILY (36 MG DAILY) INTRAMUSCULAR;  45 MG DAILY (45 MG DAILY)  INTRAMUSCULAR
     Route: 030
     Dates: start: 20080917, end: 20080917
  2. SYNAGIS [Suspect]
     Indication: PREMATURE BABY
     Dosage: 36 MG DAILY (36 MG DAILY) INTRAMUSCULAR;  45 MG DAILY (45 MG DAILY)  INTRAMUSCULAR
     Route: 030
     Dates: start: 20080917, end: 20080917
  3. SYNAGIS [Suspect]
     Indication: ANTIVIRAL PROPHYLAXIS
     Dosage: 36 MG DAILY (36 MG DAILY) INTRAMUSCULAR;  45 MG DAILY (45 MG DAILY)  INTRAMUSCULAR
     Route: 030
     Dates: start: 20081001, end: 20081001
  4. SYNAGIS [Suspect]
     Indication: PREMATURE BABY
     Dosage: 36 MG DAILY (36 MG DAILY) INTRAMUSCULAR;  45 MG DAILY (45 MG DAILY)  INTRAMUSCULAR
     Route: 030
     Dates: start: 20081001, end: 20081001

REACTIONS (6)
  - APNOEIC ATTACK [None]
  - DIARRHOEA [None]
  - GENERALISED ERYTHEMA [None]
  - NUCLEAR MAGNETIC RESONANCE IMAGING BRAIN ABNORMAL [None]
  - RASH [None]
  - VIRAL INFECTION [None]
